FAERS Safety Report 6155025-5 (Version None)
Quarter: 2009Q2

REPORT INFORMATION
  Report Type: 
  Country: None (occurrence: None)
  Receive Date: 20090414
  Receipt Date: 20090330
  Transmission Date: 20091009
  Serious: Yes (Other)
  Sender: FDA-Public Use
  Company Number: FR-GENENTECH-280973

PATIENT

DRUGS (1)
  1. RITUXIMAB [Suspect]
     Indication: ORGAN TRANSPLANT
     Dosage: 375 MG/M2, 1/WEEK
     Route: 065

REACTIONS (1)
  - BK VIRUS INFECTION [None]
